FAERS Safety Report 4267835-X (Version None)
Quarter: 2004Q1

REPORT INFORMATION
  Report Type: 
  Country: None (occurrence: None)
  Receive Date: 20040109
  Receipt Date: 20031229
  Transmission Date: 20041129
  Serious: Yes (Hospitalization)
  Sender: FDA-Public Use
  Company Number: JP-GLAXOSMITHKLINE-B0318581A

PATIENT
  Age: 95 Year
  Sex: Female
  Weight: 35 kg

DRUGS (3)
  1. VALTREX [Suspect]
     Indication: HERPES ZOSTER
     Dosage: 3000MG PER DAY
     Route: 048
     Dates: start: 20031219, end: 20031225
  2. FRUSEMIDE [Concomitant]
     Dosage: 20MG PER DAY
  3. DIGOXIN [Concomitant]
     Dosage: 125MG PER DAY

REACTIONS (3)
  - ACTIVITIES OF DAILY LIVING IMPAIRED [None]
  - DECREASED APPETITE [None]
  - RENAL FAILURE ACUTE [None]
